FAERS Safety Report 8157784-9 (Version None)
Quarter: 2012Q1

REPORT INFORMATION
  Report Type: 
  Country: None (occurrence: None)
  Receive Date: 20120222
  Receipt Date: 20120217
  Transmission Date: 20120608
  Serious: Yes (Death, Hospitalization, Other)
  Sender: FDA-Public Use
  Company Number: JP-ROCHE-722221

PATIENT
  Sex: Male
  Weight: 45 kg

DRUGS (19)
  1. FENTANYL-100 [Concomitant]
     Route: 061
  2. METOCLOPRAMIDE [Concomitant]
     Dates: start: 20100806, end: 20100809
  3. CYTOTEC [Concomitant]
     Route: 048
  4. FENTANYL-100 [Concomitant]
     Dosage: FORM: TAPE
     Route: 061
  5. MORPHINE [Concomitant]
     Dosage: FORM: ORAL LIQUUID PREPARATION, AT THE PAIN
     Route: 048
  6. CARBOPLATIN [Concomitant]
     Dosage: DOSAGE IS UNCERTAIN
     Route: 041
     Dates: start: 20100826, end: 20100929
  7. PACLITAXEL [Concomitant]
     Dosage: DOSAGE IS UNCERTAIN
     Route: 041
     Dates: start: 20100826, end: 20100929
  8. ADONA [Concomitant]
     Dates: start: 20100806, end: 20100809
  9. TRANSAMIN [Concomitant]
     Dates: start: 20100806, end: 20100809
  10. KETOPROFEN [Concomitant]
     Dosage: FORM: TAPE, PROPER QUANITY ..PROPERLY
     Route: 061
     Dates: start: 20100806, end: 20100809
  11. AVASTIN [Suspect]
     Dosage: DOSAGE IS UNCERTAIN
     Route: 041
     Dates: start: 20101202, end: 20101201
  12. TARCEVA [Suspect]
     Indication: LARGE CELL CARCINOMA OF THE RESPIRATORY TRACT STAGE UNSPECIFIED
     Route: 048
  13. AVASTIN [Suspect]
     Dosage: DOSAGE UNCERTAIN
     Route: 041
     Dates: start: 20100826, end: 20100929
  14. PACLITAXEL [Concomitant]
     Dosage: DOSAGE UNCERTAIN
     Route: 041
     Dates: start: 20101202, end: 20101201
  15. ZOLPIDEM [Concomitant]
     Dosage: AT SLEEP LOSS
     Route: 048
  16. MOTILIUM [Concomitant]
     Dosage: AT SICKNESS FEELING
     Route: 054
     Dates: start: 20100806, end: 20100809
  17. AVASTIN [Suspect]
     Indication: LARGE CELL CARCINOMA OF THE RESPIRATORY TRACT STAGE UNSPECIFIED
     Route: 041
     Dates: start: 20100716, end: 20100809
  18. LOXONIN [Concomitant]
     Route: 048
  19. ZYPREXA [Concomitant]
     Route: 048

REACTIONS (6)
  - MALAISE [None]
  - CEREBRAL HAEMORRHAGE [None]
  - RASH [None]
  - DECREASED APPETITE [None]
  - METASTASES TO MENINGES [None]
  - DISEASE PROGRESSION [None]
